FAERS Safety Report 9183094 (Version 4)
Quarter: 2014Q1

REPORT INFORMATION
  Report Type: Report from Study
  Country: JP (occurrence: JP)
  Receive Date: 20130322
  Receipt Date: 20140127
  Transmission Date: 20141002
  Serious: Yes (Hospitalization, Other)
  Sender: FDA-Public Use
  Company Number: JP-VERTEX PHARMACEUTICALS INC.-2013-003971

PATIENT
  Age: 71 Year
  Sex: Female

DRUGS (21)
  1. VX-950 (TELAPREVIR) [Suspect]
     Indication: CHRONIC HEPATITIS C
     Dosage: 1500 MG, QD
     Route: 048
     Dates: start: 20120910, end: 20121202
  2. PEGINTERFERON ALFA-2B [Suspect]
     Indication: CHRONIC HEPATITIS C
     Dosage: 1.5 ?G/KG, QW
     Route: 048
     Dates: start: 20120910, end: 20121029
  3. PEGINTERFERON ALFA-2B [Suspect]
     Dosage: 1.0 ?G/KG, QW
     Route: 048
     Dates: start: 20121105, end: 20121203
  4. RIBAVIRIN [Suspect]
     Indication: CHRONIC HEPATITIS C
     Dosage: 600 MG, QD
     Route: 048
     Dates: start: 20120910, end: 20121121
  5. RIBAVIRIN [Suspect]
     Dosage: 400 MG, QD
     Route: 048
     Dates: start: 20121122, end: 20121211
  6. PREDONINE [Suspect]
     Indication: PROPHYLAXIS
     Dosage: 20 MG, QD
     Route: 048
     Dates: start: 20120910, end: 20120930
  7. PREDONINE [Suspect]
     Dosage: 15 MG, QD
     Route: 048
     Dates: start: 20121001, end: 20121014
  8. PREDONINE [Suspect]
     Dosage: 10 MG, QD
     Route: 048
     Dates: start: 20121015, end: 20121106
  9. PREDONINE [Suspect]
     Dosage: 5 MG, QD
     Route: 048
     Dates: start: 20121107, end: 20121204
  10. PREDONINE [Suspect]
     Dosage: 2 MG, QD
     Route: 048
     Dates: start: 20121205, end: 20121211
  11. GASTER D [Concomitant]
     Dosage: 40 MG, QD
     Route: 048
     Dates: start: 20120910, end: 20121211
  12. ALLEGRA [Concomitant]
     Dosage: 120 MG, QD
     Route: 048
     Dates: start: 20120910, end: 20121211
  13. CALONAL [Concomitant]
     Dosage: 600 MG, QD
     Route: 048
     Dates: start: 20120910, end: 20121127
  14. DOGMATYL [Concomitant]
     Dosage: 100 MG, QD
     Route: 048
     Dates: start: 20120910, end: 20121021
  15. DOGMATYL [Concomitant]
     Dosage: 150 MG, QD
     Route: 048
     Dates: start: 20121022, end: 20121230
  16. DOGMATYL [Concomitant]
     Dosage: 100 MG, QD
     Route: 048
     Dates: start: 20121231
  17. FORSENID [Concomitant]
     Dosage: 36 MG, QD
     Route: 048
     Dates: start: 20120911
  18. MAGMITT [Concomitant]
     Dosage: 330 MG, QD
     Route: 048
     Dates: start: 20120911
  19. PAXIL [Concomitant]
     Dosage: 10 MG, QD
     Route: 048
     Dates: start: 20120914, end: 20121126
  20. PAXIL [Concomitant]
     Dosage: 20 MG, QD
     Route: 048
     Dates: start: 20121127
  21. LANSOPRAZOLE [Concomitant]
     Dosage: 15 MG, QD
     Route: 048
     Dates: start: 20121212

REACTIONS (3)
  - Depressive symptom [Recovered/Resolved]
  - Haemoglobin decreased [Recovered/Resolved]
  - Depressive symptom [Recovered/Resolved]
